FAERS Safety Report 7873008-1 (Version None)
Quarter: 2011Q4

REPORT INFORMATION
  Report Type: 
  Country: None (occurrence: None)
  Receive Date: 20111003
  Receipt Date: 20100903
  Transmission Date: 20120403
  Serious: Yes (Hospitalization, Other)
  Sender: FDA-Public Use
  Company Number: 247474USA

PATIENT
  Age: 43 Year
  Sex: Female

DRUGS (1)
  1. MEDROXYPROGESTERONE ACETATE [Suspect]
     Indication: MENORRHAGIA
     Dosage: 150MG/ML

REACTIONS (8)
  - GAIT DISTURBANCE [None]
  - EXERCISE TOLERANCE DECREASED [None]
  - WEIGHT INCREASED [None]
  - PAIN [None]
  - BLOOD PRESSURE INCREASED [None]
  - MENORRHAGIA [None]
  - OEDEMA PERIPHERAL [None]
  - SWELLING [None]
